FAERS Safety Report 7368549-X (Version None)
Quarter: 2011Q1

REPORT INFORMATION
  Report Type: 
  Country: None (occurrence: None)
  Receive Date: 20110311
  Receipt Date: 20110302
  Transmission Date: 20110831
  Serious: Yes (Death, Hospitalization)
  Sender: FDA-Public Use
  Company Number: 2011SP001732

PATIENT
  Age: 40 Year
  Sex: Male
  Weight: 60 kg

DRUGS (3)
  1. ESLAX (ROCURONIUM BROMIDE /01245702/) [Suspect]
     Indication: NEUROMUSCULAR BLOCKING THERAPY
     Dosage: 25 MG; QH; INDRIP
     Route: 041
     Dates: start: 20110108
  2. BRIDION (SUGARMMADEX /00000000/) [Suspect]
     Indication: NEUROMUSCULAR BLOCKADE REVERSAL
     Dosage: 200 MG; BID; IV, 200 MG; BID; IV
     Route: 042
     Dates: start: 20110112, end: 20110112
  3. BRIDION (SUGARMMADEX /00000000/) [Suspect]
     Indication: NEUROMUSCULAR BLOCKADE REVERSAL
     Dosage: 200 MG; BID; IV, 200 MG; BID; IV
     Route: 042
     Dates: start: 20110111, end: 20110111

REACTIONS (2)
  - CIRCULATORY COLLAPSE [None]
  - RECURRENCE OF NEUROMUSCULAR BLOCKADE [None]
